FAERS Safety Report 5477592-7 (Version None)
Quarter: 2007Q4

REPORT INFORMATION
  Report Type: 
  Country: None (occurrence: None)
  Receive Date: 20071002
  Receipt Date: 20070917
  Transmission Date: 20080405
  Serious: Yes (Hospitalization)
  Sender: FDA-Public Use
  Company Number: ST-2006-009273

PATIENT
  Age: 69 Year
  Sex: Male

DRUGS (20)
  1. BLINDED CS-866 OR PLACEBO (OLMESARTAN MEDOXOMIL) (TABLET) (OLMESARTAN) [Suspect]
     Indication: DIABETIC NEPHROPATHY
     Dosage: SEE IMAGE
     Route: 048
     Dates: start: 20040706, end: 20040802
  2. BLINDED CS-866 OR PLACEBO (OLMESARTAN MEDOXOMIL) (TABLET) (OLMESARTAN) [Suspect]
     Indication: TYPE 2 DIABETES MELLITUS
     Dosage: SEE IMAGE
     Route: 048
     Dates: start: 20040706, end: 20040802
  3. BLINDED CS-866 OR PLACEBO (OLMESARTAN MEDOXOMIL) (TABLET) (OLMESARTAN) [Suspect]
     Indication: DIABETIC NEPHROPATHY
     Dosage: SEE IMAGE
     Route: 048
     Dates: start: 20040803, end: 20040829
  4. BLINDED CS-866 OR PLACEBO (OLMESARTAN MEDOXOMIL) (TABLET) (OLMESARTAN) [Suspect]
     Indication: TYPE 2 DIABETES MELLITUS
     Dosage: SEE IMAGE
     Route: 048
     Dates: start: 20040803, end: 20040829
  5. BLINDED CS-866 OR PLACEBO (OLMESARTAN MEDOXOMIL) (TABLET) (OLMESARTAN) [Suspect]
     Indication: DIABETIC NEPHROPATHY
     Dosage: SEE IMAGE
     Route: 048
     Dates: start: 20040830
  6. BLINDED CS-866 OR PLACEBO (OLMESARTAN MEDOXOMIL) (TABLET) (OLMESARTAN) [Suspect]
     Indication: TYPE 2 DIABETES MELLITUS
     Dosage: SEE IMAGE
     Route: 048
     Dates: start: 20040830
  7. ZESTRIL [Concomitant]
  8. BETALOC ZOK (METOPROLOL SUCCINATE) (METOPROLOL SUCCINATE) [Concomitant]
  9. NORVASC (AMLODIPINE) (AMLODIPINE) [Concomitant]
  10. ZYLORIC (ALLOPURINOL) (ALLOPURINOL) [Concomitant]
  11. DIAMICRON MR (GLICLAZIDE) (GLICLAZIDE) [Concomitant]
  12. AVANDIA (ROSIGLITAZONE MALEATE) (ROSIGLITAZONE MALEATE) [Concomitant]
  13. PEPCIDINE (FAMOTIDINE) (FAMOTIDINE) [Concomitant]
  14. ASPIRIN [Concomitant]
  15. ZOCOR [Concomitant]
  16. LASIX [Concomitant]
  17. HYPROMELLOSE EYE DROPS (HYPROMELLOSE) (EYE DROPS) (HYPROMELLOSE) [Concomitant]
  18. SYNALAR CREAM (FLUOCINOLONE ACETONIDE) (CREAM) (FLUOCINOLONE ACETONIDE [Concomitant]
  19. AQUEOUS CREAM (PARAFFIN, LIQUID, EMULSIFYING WAX, WHITE SOFT PARAFFIN) [Concomitant]
  20. GLYCERYL TRINITRATE (GLYCERYL TRINITRATE) (GLYCERYL TRINITRATE) [Concomitant]

REACTIONS (8)
  - ABDOMINAL DISTENSION [None]
  - ASCITES [None]
  - CREPITATIONS [None]
  - DYSPNOEA [None]
  - FLUID OVERLOAD [None]
  - OEDEMA PERIPHERAL [None]
  - PITTING OEDEMA [None]
  - VENOUS PRESSURE JUGULAR INCREASED [None]
